FAERS Safety Report 25093481 (Version 1)
Quarter: 2025Q1

REPORT INFORMATION
  Report Type: Report from Study
  Country: DE (occurrence: DE)
  Receive Date: 20250319
  Receipt Date: 20250319
  Transmission Date: 20250409
  Serious: Yes (Hospitalization, Other)
  Sender: ROCHE
  Company Number: DE-ROCHE-10000229574

PATIENT
  Age: 64 Year
  Sex: Female

DRUGS (8)
  1. OBINUTUZUMAB [Suspect]
     Active Substance: OBINUTUZUMAB
     Indication: Follicular lymphoma
     Route: 042
     Dates: start: 20230130, end: 20230424
  2. BENDAMUSTINE [Suspect]
     Active Substance: BENDAMUSTINE
     Indication: Follicular lymphoma
     Route: 042
     Dates: start: 20230201, end: 20230426
  3. SYMBICORT [Concomitant]
     Active Substance: BUDESONIDE\FORMOTEROL FUMARATE DIHYDRATE
  4. SPIRIVA RESPIMAT [Concomitant]
     Active Substance: TIOTROPIUM BROMIDE
  5. PANTOPRAZOLE [Concomitant]
     Active Substance: PANTOPRAZOLE
  6. ASPIRIN [Concomitant]
     Active Substance: ASPIRIN
  7. RAMIPRIL [Concomitant]
     Active Substance: RAMIPRIL
  8. Atorimib [Concomitant]

REACTIONS (2)
  - Febrile neutropenia [Recovered/Resolved]
  - Acute kidney injury [Unknown]

NARRATIVE: CASE EVENT DATE: 20230505
